FAERS Safety Report 5670366-3 (Version None)
Quarter: 2008Q2

REPORT INFORMATION
  Report Type: 
  Country: None (occurrence: None)
  Receive Date: 20080305
  Receipt Date: 20070302
  Transmission Date: 20081010
  Serious: Yes (Other)
  Sender: FDA-Public Use
  Company Number: BDI-009151

PATIENT
  Age: 80 Year
  Sex: Female
  Weight: 65.9 kg

DRUGS (9)
  1. ISOVUE-370 [Suspect]
     Indication: ANGINA PECTORIS
     Dosage: ONCE INTRACARDIAC, ONCE INTRACARDIAC
     Route: 016
     Dates: start: 20070213, end: 20070213
  2. ISOVUE-370 [Suspect]
     Indication: ARTERIOGRAM CORONARY
     Dosage: ONCE INTRACARDIAC, ONCE INTRACARDIAC
     Route: 016
     Dates: start: 20070213, end: 20070213
  3. ISOVUE-370 [Suspect]
  4. NITROGLYCERIN [Concomitant]
  5. LISINOPRIL [Concomitant]
  6. VYTORIN [Concomitant]
  7. FOSAMAX [Concomitant]
  8. ASPIRIN [Concomitant]
  9. COREG [Concomitant]

REACTIONS (2)
  - CHEST PAIN [None]
  - ELECTROCARDIOGRAM ST SEGMENT ELEVATION [None]
